FAERS Safety Report 5194240-4 (Version None)
Quarter: 2006Q4

REPORT INFORMATION
  Report Type: 
  Country: None (occurrence: None)
  Receive Date: 20061228
  Receipt Date: 20061117
  Transmission Date: 20070319
  Serious: Yes (Hospitalization)
  Sender: FDA-Public Use
  Company Number: JP-ROXANE LABORATORIES, INC-2006-BP-13601NB

PATIENT
  Age: 64 Year
  Sex: Female

DRUGS (4)
  1. MICARDIS [Suspect]
     Indication: ESSENTIAL HYPERTENSION
     Route: 048
     Dates: start: 20061012, end: 20061031
  2. VESICARE [Suspect]
     Route: 048
     Dates: start: 20061012, end: 20061031
  3. HORIZON [Suspect]
     Dosage: 2-4 MG
     Route: 048
     Dates: start: 20061012, end: 20061031
  4. AJMALINE [Suspect]
     Route: 048
     Dates: start: 20061012, end: 20061031

REACTIONS (4)
  - ALANINE AMINOTRANSFERASE INCREASED [None]
  - ASPARTATE AMINOTRANSFERASE INCREASED [None]
  - GAMMA-GLUTAMYLTRANSFERASE INCREASED [None]
  - LIVER DISORDER [None]
